FAERS Safety Report 11896929 (Version 2)
Quarter: 2016Q1

REPORT INFORMATION
  Report Type: Spontaneous
  Country: US (occurrence: US)
  Receive Date: 20160107
  Receipt Date: 20160128
  Transmission Date: 20160526
  Serious: Yes (Other)
  Sender: FDA-Public Use
  Company Number: US-GLAXOSMITHKLINE-US2016GSK001895

PATIENT
  Sex: Female
  Weight: 57.14 kg

DRUGS (11)
  1. IMITREX [Suspect]
     Active Substance: SUMATRIPTAN SUCCINATE
     Indication: PRODUCT USED FOR UNKNOWN INDICATION
  2. SYNTHROID [Concomitant]
     Active Substance: LEVOTHYROXINE SODIUM
  3. LEVOFLOXACIN. [Suspect]
     Active Substance: LEVOFLOXACIN
     Indication: PRODUCT USED FOR UNKNOWN INDICATION
  4. SEPTRA [Suspect]
     Active Substance: SULFAMETHOXAZOLE\TRIMETHOPRIM
     Indication: PRODUCT USED FOR UNKNOWN INDICATION
  5. PLERIXAFOR [Suspect]
     Active Substance: PLERIXAFOR
     Indication: WHITE BLOOD CELL COUNT ABNORMAL
  6. ACYCLOVIR. [Suspect]
     Active Substance: ACYCLOVIR
     Indication: URINARY TRACT INFECTION
     Route: 048
  7. NYSTATIN. [Suspect]
     Active Substance: NYSTATIN
     Indication: PRODUCT USED FOR UNKNOWN INDICATION
  8. CLEOCIN [Suspect]
     Active Substance: CLINDAMYCIN PHOSPHATE
     Indication: STREPTOCOCCAL INFECTION
     Dosage: 100 MG, 1D
     Route: 067
     Dates: start: 20151217, end: 20151218
  9. ACYCLOVIR. [Suspect]
     Active Substance: ACYCLOVIR
     Indication: PROPHYLAXIS
  10. CIPROFLOXACIN. [Suspect]
     Active Substance: CIPROFLOXACIN
     Indication: URINARY TRACT INFECTION
     Dosage: UNK
     Route: 048
     Dates: start: 2013
  11. CIPROFLOXACIN. [Suspect]
     Active Substance: CIPROFLOXACIN
     Dosage: UNK
     Route: 048
     Dates: start: 2014

REACTIONS (13)
  - Adult T-cell lymphoma/leukaemia [Recovered/Resolved]
  - Retching [Unknown]
  - Anaphylactic shock [Unknown]
  - Dizziness [Recovering/Resolving]
  - Tendonitis [Unknown]
  - Physiotherapy [Unknown]
  - Headache [Unknown]
  - Urticaria [Unknown]
  - Confusional state [Recovered/Resolved]
  - Nausea [Unknown]
  - Gait disturbance [Unknown]
  - Neuropathy peripheral [Unknown]
  - Rash [Unknown]
